FAERS Safety Report 14325397 (Version 1)
Quarter: 2017Q4

REPORT INFORMATION
  Report Type: Report from Study
  Country: IT (occurrence: IT)
  Receive Date: 20171226
  Receipt Date: 20171226
  Transmission Date: 20180321
  Serious: Yes (Other)
  Sender: FDA-Public Use
  Company Number: IT-MYLANLABS-2017M1081670

PATIENT

DRUGS (7)
  1. IBRITUMOMAB TIUXETAN [Suspect]
     Active Substance: IBRITUMOMAB TIUXETAN
     Indication: DIFFUSE LARGE B-CELL LYMPHOMA
     Dosage: ADMINISTERED WITHIN 12 WEEKS AFTER R-CHOP; WEIGHT-BASED DOSE
     Route: 065
  2. VINCRISTINE [Suspect]
     Active Substance: VINCRISTINE
     Indication: DIFFUSE LARGE B-CELL LYMPHOMA
     Dosage: 1.4 MG/M2 (MAXIMUM TOTAL DOSE OF 2.0 MG) ON DAY 1; RECEIVED A STANDARD R-CHOP CHEMOTHERAPY OF 21 ...
     Route: 042
  3. RITUXIMAB. [Suspect]
     Active Substance: RITUXIMAB
     Dosage: FOLLOWING THE R-CHOP REGIMEN, THE PATIENT RECEIVED RADIATION RADIOIMMUNOTHERAPY WHICH INCLUDED IN...
     Route: 050
  4. CYCLOPHOSPHAMIDE. [Suspect]
     Active Substance: CYCLOPHOSPHAMIDE
     Indication: DIFFUSE LARGE B-CELL LYMPHOMA
     Dosage: 750 MG/M2 ON DAY 1; RECEIVED A STANDARD R-CHOP CHEMOTHERAPY OF 21 DAYS FOR 4 CYCLES
     Route: 042
  5. DOXORUBICIN [Suspect]
     Active Substance: DOXORUBICIN
     Indication: DIFFUSE LARGE B-CELL LYMPHOMA
     Dosage: 50 MG/M2 ON DAY 1; RECEIVED A STANDARD R-CHOP CHEMOTHERAPY OF 21 DAYS FOR 4 CYCLES
     Route: 042
  6. RITUXIMAB. [Suspect]
     Active Substance: RITUXIMAB
     Indication: DIFFUSE LARGE B-CELL LYMPHOMA
     Dosage: 375 MG/M2 ON DAY 1; RECEIVED A STANDARD R-CHOP CHEMOTHERAPY OF 21 DAYS FOR 4 CYCLES
     Route: 042
  7. PREDNISONE. [Suspect]
     Active Substance: PREDNISONE
     Indication: DIFFUSE LARGE B-CELL LYMPHOMA
     Dosage: 100 MG/DAY FOR FIVE DAYS FOR EACH CYCLE, STARTING FROM DAY 1; RECEIVED A STANDARD R-CHOP CHEMOTHE...
     Route: 048

REACTIONS (1)
  - Acute myeloid leukaemia [Unknown]
